FAERS Safety Report 9533680 (Version 1)
Quarter: 2013Q3

REPORT INFORMATION
  Report Type: Spontaneous
  Country: US (occurrence: US)
  Receive Date: 20130918
  Receipt Date: 20130918
  Transmission Date: 20140515
  Serious: Yes (Other)
  Sender: FDA-Public Use
  Company Number: US-NAPPMUNDI-USA-2011-0078782

PATIENT
  Sex: Female

DRUGS (2)
  1. BUTRANS [Suspect]
     Indication: INTERVERTEBRAL DISC DEGENERATION
     Dosage: 10 MCG, Q1H
     Route: 062
     Dates: start: 20111110, end: 20111124
  2. BUTRANS [Suspect]
     Dosage: 10 MCG, Q1H
     Route: 062
     Dates: start: 20111126

REACTIONS (4)
  - Muscle spasms [Unknown]
  - Tremor [Unknown]
  - Fatigue [Unknown]
  - Confusional state [Unknown]
